FAERS Safety Report 22905092 (Version 8)
Quarter: 2024Q3

REPORT INFORMATION
  Report Type: Report from Study
  Country: US (occurrence: US)
  Receive Date: 20230905
  Receipt Date: 20240708
  Transmission Date: 20241017
  Serious: No
  Sender: ACADIA PHARMACEUTICALS
  Company Number: US-ACADIA PHARMACEUTICALS INC.-ACA-2023-TRF-003473

PATIENT
  Age: 7 Year
  Sex: Female

DRUGS (4)
  1. DAYBUE [Suspect]
     Active Substance: TROFINETIDE
     Indication: Rett syndrome
     Dosage: 30 MILLILITER, BID
     Route: 048
  2. DAYBUE [Suspect]
     Active Substance: TROFINETIDE
     Dosage: 30 MILLILITER, BID
     Route: 048
  3. KEPPRA [Concomitant]
     Active Substance: LEVETIRACETAM
  4. LEVOCARNITINE [Concomitant]
     Active Substance: LEVOCARNITINE

REACTIONS (10)
  - Product dose omission issue [Not Recovered/Not Resolved]
  - Product dose omission issue [Not Recovered/Not Resolved]
  - Product use complaint [Recovering/Resolving]
  - Wrong technique in product usage process [Not Recovered/Not Resolved]
  - Product taste abnormal [Recovering/Resolving]
  - Product dose omission issue [Not Recovered/Not Resolved]
  - Diarrhoea [Recovering/Resolving]
  - Diarrhoea [Not Recovered/Not Resolved]
  - Diarrhoea [Not Recovered/Not Resolved]
  - Diarrhoea [Not Recovered/Not Resolved]

NARRATIVE: CASE EVENT DATE: 20230811
